FAERS Safety Report 9359117 (Version 1)
Quarter: 2013Q2

REPORT INFORMATION
  Report Type: Spontaneous
  Country: US (occurrence: US)
  Receive Date: 20130620
  Receipt Date: 20130620
  Transmission Date: 20140414
  Serious: No
  Sender: FDA-Public Use
  Company Number: US-US-EMD SERONO, INC.-7019524

PATIENT
  Sex: Female

DRUGS (2)
  1. REBIF [Suspect]
     Indication: MULTIPLE SCLEROSIS
     Route: 058
     Dates: start: 20090410, end: 201112
  2. ABILIFY [Concomitant]
     Indication: SCHIZOPHRENIA

REACTIONS (2)
  - Eye disorder [Recovering/Resolving]
  - Nasopharyngitis [Unknown]
